FAERS Safety Report 5471348-7 (Version None)
Quarter: 2007Q3

REPORT INFORMATION
  Report Type: 
  Country: None (occurrence: None)
  Receive Date: 20070928
  Receipt Date: 20060824
  Transmission Date: 20080115
  Serious: No
  Sender: FDA-Public Use
  Company Number: US-BRISTOL-MYERS SQUIBB COMPANY-13487384

PATIENT
  Sex: Female
  Weight: 73 kg

DRUGS (7)
  1. DEFINITY [Suspect]
     Indication: ECHOCARDIOGRAM
     Dates: start: 20060824
  2. COUMADIN [Concomitant]
  3. LIPITOR [Concomitant]
  4. ISOSORBIDE DINITRATE [Concomitant]
  5. METOPROLOL SUCCINATE [Concomitant]
  6. RANITIDINE HCL [Concomitant]
  7. AMIODARONE HCL [Concomitant]

REACTIONS (1)
  - BACK PAIN [None]
